FAERS Safety Report 7229507-9 (Version None)
Quarter: 2011Q1

REPORT INFORMATION
  Report Type: 
  Country: None (occurrence: None)
  Receive Date: 20110117
  Receipt Date: 20100302
  Transmission Date: 20110831
  Serious: No
  Sender: FDA-Public Use
  Company Number: US-TYCO HEALTHCARE/MALLINCKRODT-T201000761

PATIENT
  Sex: Male

DRUGS (2)
  1. STATIN                             /00084401/ [Concomitant]
  2. OPTIRAY 350 [Suspect]
     Indication: COMPUTERISED TOMOGRAM
     Dosage: 100 ML, SINGLE
     Route: 042
     Dates: start: 20100301, end: 20100301

REACTIONS (1)
  - HYPERSENSITIVITY [None]
